FAERS Safety Report 12805722 (Version 1)
Quarter: 2016Q4

REPORT INFORMATION
  Report Type: Report from Study
  Country: US (occurrence: US)
  Receive Date: 20161004
  Receipt Date: 20161004
  Transmission Date: 20170207
  Serious: Yes (Other)
  Sender: FDA-Public Use
  Company Number: US-ROCHE-1836139

PATIENT
  Age: 69 Year
  Sex: Female
  Weight: 55.3 kg

DRUGS (4)
  1. VELIPARIB [Suspect]
     Active Substance: VELIPARIB
     Dosage: RECIEVED ON : 06/AUG/2015, 27/AUG/2015
     Route: 042
     Dates: start: 20150716
  2. VELIPARIB [Suspect]
     Active Substance: VELIPARIB
     Dosage: RECIEVED ON: 15/MAY/2015, 05/JUN/2015, 26/JUN/2015
     Route: 042
     Dates: start: 20150424
  3. BEVACIZUMAB [Suspect]
     Active Substance: BEVACIZUMAB
     Indication: FALLOPIAN TUBE CANCER
     Dosage: RECIEVED ON 24/APR/2015, 15/MAY/2015, 05/JUN/2015, 26/JUN/2015, 16/JUL/2015, 06/AUG/2015 AND 27/AUG/
     Route: 065
     Dates: start: 20150403
  4. VELIPARIB [Suspect]
     Active Substance: VELIPARIB
     Indication: FALLOPIAN TUBE CANCER
     Route: 065
     Dates: start: 20150403

REACTIONS (3)
  - White blood cell count decreased [Unknown]
  - Anaemia [Unknown]
  - Neutrophil count decreased [Unknown]
